FAERS Safety Report 9576115 (Version 1)
Quarter: 2013Q4

REPORT INFORMATION
  Report Type: Spontaneous
  Country: US (occurrence: US)
  Receive Date: 20131001
  Receipt Date: 20131001
  Transmission Date: 20140711
  Serious: No
  Sender: FDA-Public Use
  Company Number: US-AMGEN-USASP2013001210

PATIENT
  Sex: Female

DRUGS (10)
  1. ENBREL [Suspect]
     Indication: RHEUMATOID ARTHRITIS
     Dosage: 50 MG, QWK
     Route: 058
  2. METHOTREXATE [Concomitant]
     Dosage: 2.5 MG, UNK
  3. LIPITOR [Concomitant]
     Dosage: 10 MG, UNK
  4. ATENOLOL [Concomitant]
     Dosage: 25 MG, UNK
  5. VITAMIN D                          /00107901/ [Concomitant]
     Dosage: 400 UNIT, UNK
  6. CALCIUM PLUS VITAMIN D [Concomitant]
     Dosage: UNK
  7. ASPIRIN [Concomitant]
     Dosage: 81 MG, ADLT
  8. VITAMIN C                          /00008001/ [Concomitant]
     Dosage: UNK
  9. FOLIC ACID [Concomitant]
     Dosage: 20 MG, UNK
  10. ALTACE [Concomitant]
     Dosage: 1.25 MG, UNK

REACTIONS (2)
  - Contusion [Unknown]
  - Dizziness [Unknown]
